FAERS Safety Report 7534594-4 (Version None)
Quarter: 2011Q2

REPORT INFORMATION
  Report Type: 
  Country: None (occurrence: None)
  Receive Date: 20110609
  Receipt Date: 20100318
  Transmission Date: 20111010
  Serious: Yes (Death, Hospitalization, Other)
  Sender: FDA-Public Use
  Company Number: PHHY2009DE08458

PATIENT
  Sex: Male
  Weight: 80 kg

DRUGS (6)
  1. IBUPROFEN [Concomitant]
     Dates: start: 20080901
  2. BENDAMUSTINE [Concomitant]
     Dosage: 80 MG/M2, UNK
     Dates: start: 20090518
  3. OXYGESIC [Concomitant]
     Dosage: 10 OT, BID
     Dates: start: 20081113
  4. OMEPRAZOLE [Concomitant]
     Dosage: 40 OT, QD
     Dates: start: 20080901
  5. ZOMETA [Suspect]
     Indication: METASTASES TO BONE
     Dosage: 4 MG, EVERY 4 WEEKS
     Route: 042
     Dates: start: 20081106, end: 20091211
  6. CALCIUM D3 [Concomitant]
     Dates: start: 20081106

REACTIONS (12)
  - PNEUMONIA [None]
  - DYSPNOEA EXERTIONAL [None]
  - COUGH [None]
  - GENERAL PHYSICAL HEALTH DETERIORATION [None]
  - BRONCHITIS [None]
  - ANAEMIA [None]
  - BLOOD DISORDER [None]
  - GAIT DISTURBANCE [None]
  - HAEMOPTYSIS [None]
  - NEOPLASM MALIGNANT [None]
  - NEUTROPENIA [None]
  - HERPES ZOSTER [None]
